FAERS Safety Report 6077728-3 (Version None)
Quarter: 2009Q1

REPORT INFORMATION
  Report Type: 
  Country: None (occurrence: None)
  Receive Date: 20090213
  Receipt Date: 20090209
  Transmission Date: 20090719
  Serious: Yes (Other)
  Sender: FDA-Public Use
  Company Number: PHHY2009IE04512

PATIENT
  Sex: Male

DRUGS (2)
  1. RASILEZ [Suspect]
     Dosage: UNK
     Route: 048
  2. ACE INHIBITOR NOS [Concomitant]

REACTIONS (1)
  - BLOOD PRESSURE INCREASED [None]
